FAERS Safety Report 4635223-X (Version None)
Quarter: 2005Q2

REPORT INFORMATION
  Report Type: 
  Country: None (occurrence: None)
  Receive Date: 20050411
  Receipt Date: 20050401
  Transmission Date: 20051028
  Serious: Yes (Hospitalization, Disabling)
  Sender: FDA-Public Use
  Company Number: 2005UW01685

PATIENT
  Age: 81 Year
  Sex: Female
  Weight: 75 kg

DRUGS (7)
  1. XYLOCAINE W/ EPINEPHRINE [Suspect]
     Indication: ANAESTHESIA
     Dosage: 300 MG ONCE RNB
     Dates: start: 20050125, end: 20050125
  2. XYLOCAINE W/ EPINEPHRINE [Suspect]
     Indication: ARTHROPATHY
     Dosage: 300 MG ONCE RNB
     Dates: start: 20050125, end: 20050125
  3. XYLOCAINE W/ EPINEPHRINE [Suspect]
     Indication: SURGERY
     Dosage: 300 MG ONCE RNB
     Dates: start: 20050125, end: 20050125
  4. NAROPIN [Suspect]
     Indication: ANAESTHESIA
     Dosage: 75 MG ONCE RNB
     Dates: start: 20050125, end: 20050125
  5. NAROPIN [Suspect]
     Indication: ARTHROPATHY
     Dosage: 75 MG ONCE RNB
     Dates: start: 20050125, end: 20050125
  6. NAROPIN [Suspect]
     Indication: SURGERY
     Dosage: 75 MG ONCE RNB
     Dates: start: 20050125, end: 20050125
  7. ANTIHYPERTENSIVE [Concomitant]

REACTIONS (4)
  - BRACHIAL PLEXUS LESION [None]
  - MONOPLEGIA [None]
  - NEUROPATHY [None]
  - POST PROCEDURAL COMPLICATION [None]
